FAERS Safety Report 20960059 (Version 1)
Quarter: 2022Q2

REPORT INFORMATION
  Report Type: Spontaneous
  Country: US (occurrence: US)
  Receive Date: 20220615
  Receipt Date: 20220615
  Transmission Date: 20220721
  Serious: No
  Sender: FDA-Public Use
  Company Number: US-ELI_LILLY_AND_COMPANY-US202205008345

PATIENT
  Sex: Female

DRUGS (3)
  1. HUMALOG [Suspect]
     Active Substance: INSULIN LISPRO
     Indication: Type 2 diabetes mellitus
     Dosage: 38 U, QID, 30 TO 38 UNITS 3 TO 4 TIMES PER DAY (SLIDING SCALE)
     Route: 058
     Dates: start: 2021
  2. BASAGLAR [Suspect]
     Active Substance: INSULIN GLARGINE
     Indication: Type 2 diabetes mellitus
     Dosage: 50 U, DAILY
     Route: 065
     Dates: start: 2020
  3. OZEMPIC [Concomitant]
     Active Substance: SEMAGLUTIDE
     Indication: Type 2 diabetes mellitus
     Dosage: 100 U, WEEKLY (1/W)
     Dates: start: 2021

REACTIONS (1)
  - Blood glucose increased [Unknown]
